FAERS Safety Report 9892681 (Version 1)
Quarter: 2014Q1

REPORT INFORMATION
  Report Type: Spontaneous
  Country: PL (occurrence: PL)
  Receive Date: 20140212
  Receipt Date: 20140212
  Transmission Date: 20141002
  Serious: Yes (Other)
  Sender: FDA-Public Use
  Company Number: PL-BAXTER-2014BAX005681

PATIENT
  Age: 15 Year
  Sex: Male

DRUGS (1)
  1. ENDOXAN [Suspect]
     Indication: LYMPHOMA
     Route: 065

REACTIONS (1)
  - Diplopia [Recovered/Resolved]
